FAERS Safety Report 24566514 (Version 1)
Quarter: 2024Q4

REPORT INFORMATION
  Report Type: Spontaneous
  Country: FR (occurrence: FR)
  Receive Date: 20241030
  Receipt Date: 20241030
  Transmission Date: 20250115
  Serious: Yes (Hospitalization)
  Sender: PFIZER
  Company Number: None

PATIENT
  Age: 75 Year
  Sex: Male
  Weight: 62 kg

DRUGS (2)
  1. PIPERACILLIN SODIUM\TAZOBACTAM SODIUM [Suspect]
     Active Substance: PIPERACILLIN SODIUM\TAZOBACTAM SODIUM
     Indication: Osteomyelitis
     Dosage: 12 G, 1X/DAY
     Route: 042
     Dates: start: 20240909, end: 20241004
  2. DAPTOMYCIN [Suspect]
     Active Substance: DAPTOMYCIN
     Indication: Osteomyelitis
     Dosage: 600 MG, 1X/DAY
     Route: 042
     Dates: start: 20240909, end: 20241004

REACTIONS (5)
  - Eosinophilia [Recovering/Resolving]
  - Pyrexia [Not Recovered/Not Resolved]
  - Lung disorder [Not Recovered/Not Resolved]
  - Oxygen saturation decreased [Not Recovered/Not Resolved]
  - Off label use [Unknown]

NARRATIVE: CASE EVENT DATE: 20240909
